FAERS Safety Report 13948761 (Version 1)
Quarter: 2017Q3

REPORT INFORMATION
  Report Type: Report from Study
  Country: US (occurrence: BR)
  Receive Date: 20170908
  Receipt Date: 20170908
  Transmission Date: 20171128
  Serious: Yes (Other)
  Sender: FDA-Public Use
  Company Number: US-SUNOVION-2017SUN003943

PATIENT
  Sex: Female
  Weight: 70 kg

DRUGS (8)
  1. INDACATEROL AND GLYCOPYRROLATE [Suspect]
     Active Substance: GLYCOPYRROLATE\INDACATEROL MALEATE
     Indication: EMPHYSEMA
     Dosage: 1 DF, BID, 4:00 AND 07:00 IN THE MORNING
     Route: 055
  2. CALCIUM [Concomitant]
     Active Substance: CALCIUM
     Dosage: UNK
     Dates: start: 2015
  3. INDACATEROL AND GLYCOPYRROLATE [Suspect]
     Active Substance: GLYCOPYRROLATE\INDACATEROL MALEATE
     Indication: CHRONIC OBSTRUCTIVE PULMONARY DISEASE
  4. INDACATEROL AND GLYCOPYRROLATE [Suspect]
     Active Substance: GLYCOPYRROLATE\INDACATEROL MALEATE
     Indication: BRONCHITIS CHRONIC
     Dosage: 1 DF (GLYCOPYRRONIUM BROMIDE 50 UG/INDACATEROL 110 UG), QD
     Route: 055
  5. ACEBROFILINA [Concomitant]
     Dosage: UNK
     Dates: start: 2015
  6. ANTIDEPRESSANTS [Concomitant]
     Active Substance: UNSPECIFIED INGREDIENT
     Dosage: UNK
  7. ALENIA [Concomitant]
     Active Substance: BUDESONIDE\FORMOTEROL FUMARATE
     Indication: BRONCHITIS CHRONIC
     Dosage: UNK
     Dates: start: 2000
  8. CORTICOSTEROIDS [Concomitant]
     Active Substance: CORTICOSTEROID NOS
     Dosage: UNK

REACTIONS (12)
  - Visual impairment [Unknown]
  - Weight increased [Unknown]
  - Fatigue [Unknown]
  - Muscular weakness [Unknown]
  - Chest pain [Unknown]
  - Pneumonitis [Unknown]
  - Bronchitis [Unknown]
  - Dyspnoea [Unknown]
  - Dysphonia [Unknown]
  - Inappropriate schedule of drug administration [Unknown]
  - Emphysema [Unknown]
  - Lumbar vertebral fracture [Unknown]
